FAERS Safety Report 13714172 (Version 1)
Quarter: 2017Q3

REPORT INFORMATION
  Report Type: Spontaneous
  Country: TR (occurrence: TR)
  Receive Date: 20170704
  Receipt Date: 20170704
  Transmission Date: 20171127
  Serious: Yes (Disabling)
  Sender: FDA-Public Use
  Company Number: TR-MYLANLABS-2017M1038905

PATIENT

DRUGS (3)
  1. RITUXIMAB. [Suspect]
     Active Substance: RITUXIMAB
     Indication: PEMPHIGOID
     Dosage: 1,000 MG 2 TIMES WITH 2 WEEKS APART
     Route: 050
     Dates: start: 201407
  2. CLOBETASOL [Suspect]
     Active Substance: CLOBETASOL
     Indication: PEMPHIGOID
     Dosage: 0.05%
     Route: 061
  3. OMALIZUMAB. [Concomitant]
     Active Substance: OMALIZUMAB
     Indication: PEMPHIGOID
     Dosage: 525MG EVERY 2 WEEKS
     Route: 058

REACTIONS (6)
  - Myositis [Unknown]
  - Gait inability [Unknown]
  - Skin atrophy [Unknown]
  - Tachycardia [Recovered/Resolved]
  - Muscle atrophy [Unknown]
  - Osteoporosis [Unknown]
